FAERS Safety Report 10744344 (Version 1)
Quarter: 2015Q1

REPORT INFORMATION
  Report Type: Spontaneous
  Country: US (occurrence: US)
  Receive Date: 20150128
  Receipt Date: 20150128
  Transmission Date: 20150721
  Serious: No
  Sender: FDA-Public Use
  Company Number: US-PFIZER INC-2015028041

PATIENT
  Age: 40 Year
  Sex: Female
  Weight: 70 kg

DRUGS (2)
  1. TYLENOL SINUS [Concomitant]
     Active Substance: ACETAMINOPHEN\DIPHENHYDRAMINE
     Dosage: UNK, EVERY 6 HOURS
     Dates: start: 20150115
  2. ADVIL CONGESTION RELIEF [Suspect]
     Active Substance: IBUPROFEN\PHENYLEPHRINE HYDROCHLORIDE
     Dosage: UNK
     Dates: start: 201501

REACTIONS (3)
  - Feeling abnormal [Unknown]
  - Paraesthesia oral [Unknown]
  - Feeling jittery [Unknown]

NARRATIVE: CASE EVENT DATE: 20150116
